FAERS Safety Report 8471899-7 (Version None)
Quarter: 2012Q2

REPORT INFORMATION
  Report Type: 
  Country: None (occurrence: None)
  Receive Date: 20120627
  Receipt Date: 20120618
  Transmission Date: 20120825
  Serious: Yes (Life-Threatening, Hospitalization, Other)
  Sender: FDA-Public Use
  Company Number: TW-ROXANE LABORATORIES, INC.-2012-RO-01441RO

PATIENT
  Age: 32 Year
  Sex: Male

DRUGS (5)
  1. BENZTROPINE MESYLATE [Suspect]
     Indication: SCHIZOAFFECTIVE DISORDER
  2. LITHIUM CARBONATE [Suspect]
     Indication: SCHIZOAFFECTIVE DISORDER
     Dosage: 300 MG
  3. RISPERIDONE [Suspect]
     Indication: SCHIZOAFFECTIVE DISORDER
     Dosage: 4 MG
  4. VENLAFAXINE [Suspect]
     Indication: SCHIZOAFFECTIVE DISORDER
     Dosage: 150 MG
  5. PALIPERIDONE [Suspect]
     Indication: SCHIZOAFFECTIVE DISORDER
     Dosage: 3 MG

REACTIONS (4)
  - NEUROLEPTIC MALIGNANT SYNDROME [None]
  - RESPIRATORY FAILURE [None]
  - CHRONIC HEPATITIS [None]
  - CATATONIA [None]
